FAERS Safety Report 20622360 (Version 9)
Quarter: 2022Q2

REPORT INFORMATION
  Report Type: Report from Study
  Country: CN (occurrence: CN)
  Receive Date: 20220322
  Receipt Date: 20220426
  Transmission Date: 20220721
  Serious: Yes (Hospitalization)
  Sender: FDA-Public Use
  Company Number: CN-KARYOPHARM-2022KPT000342

PATIENT
  Age: 31 Year
  Sex: Female

DRUGS (19)
  1. SELINEXOR [Suspect]
     Active Substance: SELINEXOR
     Indication: Angiocentric lymphoma
     Dosage: 60 MG, QD (C1, D1)
     Route: 048
     Dates: start: 20220105, end: 20220105
  2. SELINEXOR [Suspect]
     Active Substance: SELINEXOR
     Dosage: 60 MG, QD (C1, D8)
     Route: 048
     Dates: start: 20220113, end: 20220113
  3. SELINEXOR [Suspect]
     Active Substance: SELINEXOR
     Dosage: 60 MG, QD (C2, D1)
     Route: 048
     Dates: start: 20220125, end: 20220125
  4. SELINEXOR [Suspect]
     Active Substance: SELINEXOR
     Dosage: 60 MG, QD (C2, D8)
     Route: 048
     Dates: start: 20220201, end: 20220201
  5. SELINEXOR [Suspect]
     Active Substance: SELINEXOR
     Dosage: 60 MG, QD (C3, D1)
     Route: 048
     Dates: start: 20220218, end: 20220218
  6. SELINEXOR [Suspect]
     Active Substance: SELINEXOR
     Dosage: 60 MG, QD (C4, D1)
     Route: 048
     Dates: start: 20220311, end: 20220311
  7. SELINEXOR [Suspect]
     Active Substance: SELINEXOR
     Dosage: 60 MG, QD (C5, D1)
     Route: 048
     Dates: start: 20220331, end: 20220331
  8. GEMCITABINE [Suspect]
     Active Substance: GEMCITABINE
     Indication: Angiocentric lymphoma
     Dosage: 1.4 G, QD (C1, D1)
     Route: 041
     Dates: start: 20220105, end: 20220105
  9. GEMCITABINE [Suspect]
     Active Substance: GEMCITABINE
     Dosage: 1.4 G, QD (C1, D8)
     Route: 041
     Dates: start: 20220113, end: 20220113
  10. GEMCITABINE [Suspect]
     Active Substance: GEMCITABINE
     Dosage: 1.38 G, QD (C2, D1)
     Route: 041
     Dates: start: 20220125, end: 20220125
  11. GEMCITABINE [Suspect]
     Active Substance: GEMCITABINE
     Dosage: 1.38 G, QD (C3, D1)
     Route: 041
     Dates: start: 20220218, end: 20220218
  12. GEMCITABINE [Suspect]
     Active Substance: GEMCITABINE
     Dosage: 0.998 G, QD (C3, D8)
     Route: 041
     Dates: start: 20220225, end: 20220225
  13. GEMCITABINE [Suspect]
     Active Substance: GEMCITABINE
     Dosage: 1.37 G, QD (C4, D1)
     Route: 041
     Dates: start: 20220311, end: 20220311
  14. GEMCITABINE [Suspect]
     Active Substance: GEMCITABINE
     Dosage: 1.37 G, QD (C5, D1)
     Route: 041
     Dates: start: 20220331, end: 20220331
  15. OXALIPLATIN [Suspect]
     Active Substance: OXALIPLATIN
     Indication: Angiocentric lymphoma
     Dosage: 182 MG, QD (C1, D1)
     Route: 041
     Dates: start: 20220105, end: 20220105
  16. OXALIPLATIN [Suspect]
     Active Substance: OXALIPLATIN
     Dosage: 179 MG, QD (C2, D1)
     Route: 041
     Dates: start: 20220125, end: 20220125
  17. OXALIPLATIN [Suspect]
     Active Substance: OXALIPLATIN
     Dosage: 179 MG, QD (C3, D1)
     Route: 041
     Dates: start: 20220218, end: 20220218
  18. OXALIPLATIN [Suspect]
     Active Substance: OXALIPLATIN
     Dosage: 178 MG, QD (C4, D1)
     Route: 041
     Dates: start: 20220311, end: 20220311
  19. OXALIPLATIN [Suspect]
     Active Substance: OXALIPLATIN
     Dosage: 178 MG, QD (C5, D1)
     Route: 041
     Dates: start: 20220331, end: 20220331

REACTIONS (3)
  - Neutrophil count decreased [Recovered/Resolved]
  - Pyrexia [Recovered/Resolved]
  - Pyrexia [Recovered/Resolved]

NARRATIVE: CASE EVENT DATE: 20220311
